FAERS Safety Report 6932462-X (Version None)
Quarter: 2010Q3

REPORT INFORMATION
  Report Type: 
  Country: None (occurrence: None)
  Receive Date: 20100817
  Receipt Date: 20100805
  Transmission Date: 20110219
  Serious: No
  Sender: FDA-Public Use
  Company Number: UTC-001251

PATIENT
  Sex: Female
  Weight: 78.5 kg

DRUGS (14)
  1. REMODULIN [Suspect]
     Indication: PULMONARY ARTERIAL HYPERTENSION
     Dosage: 55.8 UG/KG (0.03875 UG/KG, 1 IN 1 MIN), INTRAVENOUS
     Route: 042
     Dates: start: 20090515
  2. TRACLEER [Concomitant]
  3. CELLCEPT [Concomitant]
  4. LASIX [Concomitant]
  5. REVATIO [Concomitant]
  6. PLAQUENIL [Concomitant]
  7. PREDNISONE [Concomitant]
  8. ZYRTEC [Concomitant]
  9. POTASSIUM CHLORIDE [Concomitant]
  10. TRAMADOL HCL [Concomitant]
  11. ACTONEL [Concomitant]
  12. EPIPEN [Concomitant]
  13. WARFARIN SODIUM [Concomitant]
  14. NORVASC [Concomitant]

REACTIONS (12)
  - ANTICOAGULATION DRUG LEVEL BELOW THERAPEUTIC [None]
  - CARDIOMEGALY [None]
  - CHEST PAIN [None]
  - CONDITION AGGRAVATED [None]
  - DYSPNOEA [None]
  - FIBRIN D DIMER INCREASED [None]
  - LYMPHADENOPATHY [None]
  - PLEURAL EFFUSION [None]
  - PRODUCTIVE COUGH [None]
  - PULMONARY OEDEMA [None]
  - SYSTEMIC LUPUS ERYTHEMATOSUS [None]
  - VENOUS OCCLUSION [None]
